FAERS Safety Report 24933714 (Version 3)
Quarter: 2025Q3

REPORT INFORMATION
  Report Type: Spontaneous
  Country: CA (occurrence: CA)
  Receive Date: 20250206
  Receipt Date: 20250804
  Transmission Date: 20251020
  Serious: Yes (Death, Life-Threatening, Hospitalization, Disabling, Congenital Anomaly, Other)
  Sender: AMGEN
  Company Number: CA-HALEON-2224716

PATIENT
  Age: 40 Year
  Sex: Female

DRUGS (184)
  1. AIMOVIG [Suspect]
     Active Substance: ERENUMAB-AOOE
     Indication: Migraine
     Route: 065
  2. RITUXIMAB [Suspect]
     Active Substance: RITUXIMAB
     Indication: Rheumatoid arthritis
     Route: 043
  3. RITUXIMAB [Suspect]
     Active Substance: RITUXIMAB
     Route: 058
  4. RITUXIMAB [Suspect]
     Active Substance: RITUXIMAB
     Route: 040
  5. RITUXIMAB [Suspect]
     Active Substance: RITUXIMAB
     Route: 065
  6. RITUXIMAB [Suspect]
     Active Substance: RITUXIMAB
     Route: 065
  7. RITUXIMAB [Suspect]
     Active Substance: RITUXIMAB
     Route: 065
  8. RITUXIMAB [Suspect]
     Active Substance: RITUXIMAB
     Route: 065
  9. RITUXIMAB [Suspect]
     Active Substance: RITUXIMAB
     Route: 065
  10. RITUXIMAB [Suspect]
     Active Substance: RITUXIMAB
     Route: 065
  11. RITUXIMAB [Suspect]
     Active Substance: RITUXIMAB
     Route: 065
  12. RITUXIMAB [Suspect]
     Active Substance: RITUXIMAB
     Route: 065
  13. RITUXIMAB [Suspect]
     Active Substance: RITUXIMAB
     Route: 065
  14. RITUXIMAB [Suspect]
     Active Substance: RITUXIMAB
     Route: 040
  15. RITUXIMAB [Suspect]
     Active Substance: RITUXIMAB
     Route: 043
  16. RITUXIMAB [Suspect]
     Active Substance: RITUXIMAB
     Route: 043
  17. RITUXIMAB [Suspect]
     Active Substance: RITUXIMAB
     Route: 058
  18. RITUXIMAB [Suspect]
     Active Substance: RITUXIMAB
     Route: 058
  19. APREMILAST [Suspect]
     Active Substance: APREMILAST
     Indication: Rheumatoid arthritis
     Route: 065
  20. APREMILAST [Suspect]
     Active Substance: APREMILAST
     Route: 065
  21. VOLTAREN [Suspect]
     Active Substance: DICLOFENAC SODIUM
     Indication: Product used for unknown indication
     Route: 065
  22. COSENTYX [Suspect]
     Active Substance: SECUKINUMAB
     Indication: Rheumatoid arthritis
     Route: 065
  23. COSENTYX [Suspect]
     Active Substance: SECUKINUMAB
     Indication: Psoriatic arthropathy
     Route: 065
  24. COSENTYX [Suspect]
     Active Substance: SECUKINUMAB
     Route: 065
  25. COSENTYX [Suspect]
     Active Substance: SECUKINUMAB
     Route: 065
  26. DICLOFENAC POTASSIUM [Suspect]
     Active Substance: DICLOFENAC POTASSIUM
     Indication: Product used for unknown indication
     Route: 065
  27. OXYCODONE [Suspect]
     Active Substance: OXYCODONE
     Indication: Product used for unknown indication
     Route: 065
  28. ERELZI [Suspect]
     Active Substance: ETANERCEPT-SZZS
     Indication: Rheumatoid arthritis
     Route: 058
  29. ERELZI [Suspect]
     Active Substance: ETANERCEPT-SZZS
     Route: 065
  30. ERELZI [Suspect]
     Active Substance: ETANERCEPT-SZZS
     Route: 058
  31. ERELZI [Suspect]
     Active Substance: ETANERCEPT-SZZS
     Route: 065
  32. PHENYLEPHRINE HYDROCHLORIDE [Suspect]
     Active Substance: PHENYLEPHRINE HYDROCHLORIDE
     Indication: Rheumatoid arthritis
     Route: 065
  33. VITAMIN C [Suspect]
     Active Substance: ASCORBIC ACID
     Indication: Product used for unknown indication
     Route: 065
  34. CELECOXIB [Suspect]
     Active Substance: CELECOXIB
     Indication: Product used for unknown indication
     Route: 048
  35. CELECOXIB [Suspect]
     Active Substance: CELECOXIB
     Route: 048
  36. GOLIMUMAB [Suspect]
     Active Substance: GOLIMUMAB
     Indication: Rheumatoid arthritis
     Route: 065
  37. GOLIMUMAB [Suspect]
     Active Substance: GOLIMUMAB
     Indication: Prostatic specific antigen
     Route: 058
  38. IMURAN [Suspect]
     Active Substance: AZATHIOPRINE
     Indication: Rheumatoid arthritis
     Route: 065
  39. REMICADE [Suspect]
     Active Substance: INFLIXIMAB
     Indication: Rheumatoid arthritis
     Route: 040
  40. REMICADE [Suspect]
     Active Substance: INFLIXIMAB
     Route: 058
  41. REMICADE [Suspect]
     Active Substance: INFLIXIMAB
     Route: 058
  42. REMICADE [Suspect]
     Active Substance: INFLIXIMAB
     Route: 065
  43. REMICADE [Suspect]
     Active Substance: INFLIXIMAB
     Route: 065
  44. REMICADE [Suspect]
     Active Substance: INFLIXIMAB
     Route: 040
  45. REMICADE [Suspect]
     Active Substance: INFLIXIMAB
     Route: 065
  46. REMICADE [Suspect]
     Active Substance: INFLIXIMAB
     Route: 065
  47. ZINC [Suspect]
     Active Substance: ZINC
     Indication: Product used for unknown indication
     Route: 065
  48. XELJANZ [Suspect]
     Active Substance: TOFACITINIB CITRATE
     Indication: Rheumatoid arthritis
     Route: 065
  49. XELJANZ [Suspect]
     Active Substance: TOFACITINIB CITRATE
     Route: 048
  50. XELJANZ [Suspect]
     Active Substance: TOFACITINIB CITRATE
     Route: 065
  51. XELJANZ [Suspect]
     Active Substance: TOFACITINIB CITRATE
     Route: 065
  52. XELJANZ [Suspect]
     Active Substance: TOFACITINIB CITRATE
     Route: 065
  53. XELJANZ [Suspect]
     Active Substance: TOFACITINIB CITRATE
     Route: 048
  54. XELJANZ [Suspect]
     Active Substance: TOFACITINIB CITRATE
     Route: 065
  55. TRAMADOL HYDROCHLORIDE [Suspect]
     Active Substance: TRAMADOL HYDROCHLORIDE
     Indication: Rheumatoid arthritis
     Route: 013
  56. TOPIRAMATE [Suspect]
     Active Substance: TOPIRAMATE
     Indication: Rheumatoid arthritis
     Route: 065
  57. TOPIRAMATE [Suspect]
     Active Substance: TOPIRAMATE
     Route: 065
  58. TOPIRAMATE [Suspect]
     Active Substance: TOPIRAMATE
     Route: 065
  59. TOPIRAMATE [Suspect]
     Active Substance: TOPIRAMATE
     Route: 065
  60. TOFACITINIB CITRATE [Suspect]
     Active Substance: TOFACITINIB CITRATE
     Indication: Rheumatoid arthritis
     Route: 048
  61. TOFACITINIB CITRATE [Suspect]
     Active Substance: TOFACITINIB CITRATE
     Route: 048
  62. TOFACITINIB [Suspect]
     Active Substance: TOFACITINIB
     Indication: Rheumatoid arthritis
     Route: 065
  63. TOCILIZUMAB [Suspect]
     Active Substance: TOCILIZUMAB
     Indication: Rheumatoid arthritis
     Route: 058
  64. TOCILIZUMAB [Suspect]
     Active Substance: TOCILIZUMAB
     Route: 065
  65. TOCILIZUMAB [Suspect]
     Active Substance: TOCILIZUMAB
     Route: 065
  66. TOCILIZUMAB [Suspect]
     Active Substance: TOCILIZUMAB
     Route: 058
  67. TOCILIZUMAB [Suspect]
     Active Substance: TOCILIZUMAB
     Route: 065
  68. TOCILIZUMAB [Suspect]
     Active Substance: TOCILIZUMAB
     Route: 058
  69. TOCILIZUMAB [Suspect]
     Active Substance: TOCILIZUMAB
     Route: 058
  70. TOCILIZUMAB [Suspect]
     Active Substance: TOCILIZUMAB
     Route: 065
  71. TOCILIZUMAB [Suspect]
     Active Substance: TOCILIZUMAB
     Route: 065
  72. GOLD SODIUM THIOMALATE [Suspect]
     Active Substance: GOLD SODIUM THIOMALATE
     Indication: Product used for unknown indication
     Route: 048
  73. GOLD SODIUM THIOMALATE [Suspect]
     Active Substance: GOLD SODIUM THIOMALATE
     Route: 065
  74. GOLD SODIUM THIOMALATE [Suspect]
     Active Substance: GOLD SODIUM THIOMALATE
     Route: 065
  75. METHOTREXATE [Suspect]
     Active Substance: METHOTREXATE
     Indication: Rheumatoid arthritis
     Route: 048
  76. METHOTREXATE [Suspect]
     Active Substance: METHOTREXATE
     Route: 048
  77. METHOTREXATE [Suspect]
     Active Substance: METHOTREXATE
     Route: 048
  78. METHOTREXATE [Suspect]
     Active Substance: METHOTREXATE
     Route: 048
  79. METHOTREXATE [Suspect]
     Active Substance: METHOTREXATE
     Route: 048
  80. METHOTREXATE [Suspect]
     Active Substance: METHOTREXATE
     Dosage: 15 MG, QW
     Route: 048
  81. METHOTREXATE [Suspect]
     Active Substance: METHOTREXATE
     Dosage: 25 MG, QW
     Route: 048
  82. METHOTREXATE [Suspect]
     Active Substance: METHOTREXATE
     Dosage: 25 MG, QW
     Route: 048
  83. METHOTREXATE [Suspect]
     Active Substance: METHOTREXATE
     Dosage: 25 MG, QW
     Route: 048
  84. METHOTREXATE [Suspect]
     Active Substance: METHOTREXATE
     Dosage: 20 MG, QW
     Route: 048
  85. METHOTREXATE [Suspect]
     Active Substance: METHOTREXATE
     Dosage: 40 MG, QW
     Route: 048
  86. METHOTREXATE [Suspect]
     Active Substance: METHOTREXATE
     Dosage: 20 MG, QW
     Route: 058
  87. METHOTREXATE [Suspect]
     Active Substance: METHOTREXATE
     Dosage: 25 MG, QW
     Route: 058
  88. METHOTREXATE [Suspect]
     Active Substance: METHOTREXATE
     Dosage: 25 MG, QW
     Route: 016
  89. METHOTREXATE [Suspect]
     Active Substance: METHOTREXATE
     Dosage: 25 MG, QW
     Route: 013
  90. METHOTREXATE [Suspect]
     Active Substance: METHOTREXATE
     Route: 013
  91. METHOTREXATE [Suspect]
     Active Substance: METHOTREXATE
     Dosage: 25 MG, QW
     Route: 065
  92. METHOTREXATE [Suspect]
     Active Substance: METHOTREXATE
     Dosage: 225 MG, QW
     Route: 065
  93. METHOTREXATE [Suspect]
     Active Substance: METHOTREXATE
     Route: 065
  94. METHOTREXATE [Suspect]
     Active Substance: METHOTREXATE
     Route: 048
  95. NAPROXEN SODIUM [Suspect]
     Active Substance: NAPROXEN SODIUM
     Indication: Product used for unknown indication
     Route: 065
  96. NICOTINAMIDE [Suspect]
     Active Substance: NIACINAMIDE
     Indication: Product used for unknown indication
     Route: 065
  97. NUCALA [Suspect]
     Active Substance: MEPOLIZUMAB
     Indication: Product used for unknown indication
     Route: 065
  98. ORENCIA [Suspect]
     Active Substance: ABATACEPT
     Indication: Rheumatoid arthritis
     Route: 065
  99. ORENCIA [Suspect]
     Active Substance: ABATACEPT
     Route: 065
  100. ORENCIA [Suspect]
     Active Substance: ABATACEPT
     Route: 065
  101. ORENCIA [Suspect]
     Active Substance: ABATACEPT
     Route: 065
  102. ORENCIA [Suspect]
     Active Substance: ABATACEPT
     Route: 065
  103. ORENCIA [Suspect]
     Active Substance: ABATACEPT
     Route: 065
  104. ORENCIA [Suspect]
     Active Substance: ABATACEPT
     Route: 065
  105. ORENCIA [Suspect]
     Active Substance: ABATACEPT
     Route: 065
  106. ORENCIA [Suspect]
     Active Substance: ABATACEPT
     Route: 058
  107. ORENCIA [Suspect]
     Active Substance: ABATACEPT
     Route: 065
  108. ORENCIA [Suspect]
     Active Substance: ABATACEPT
     Route: 065
  109. OXYCODONE TEREPHTHALATE [Suspect]
     Active Substance: OXYCODONE TEREPHTHALATE
     Indication: Product used for unknown indication
     Route: 065
  110. PERIOGARD [Suspect]
     Active Substance: CHLORHEXIDINE GLUCONATE
     Indication: Product used for unknown indication
     Route: 065
  111. PHTHALYLSULFATHIAZOLE [Suspect]
     Active Substance: PHTHALYLSULFATHIAZOLE
     Indication: Rheumatoid arthritis
     Route: 065
  112. PHTHALYLSULFATHIAZOLE [Suspect]
     Active Substance: PHTHALYLSULFATHIAZOLE
     Route: 048
  113. PHTHALYLSULFATHIAZOLE [Suspect]
     Active Substance: PHTHALYLSULFATHIAZOLE
     Route: 065
  114. PHTHALYLSULFATHIAZOLE [Suspect]
     Active Substance: PHTHALYLSULFATHIAZOLE
     Route: 065
  115. PHTHALYLSULFATHIAZOLE [Suspect]
     Active Substance: PHTHALYLSULFATHIAZOLE
     Route: 058
  116. PHTHALYLSULFATHIAZOLE [Suspect]
     Active Substance: PHTHALYLSULFATHIAZOLE
     Route: 065
  117. PHTHALYLSULFATHIAZOLE [Suspect]
     Active Substance: PHTHALYLSULFATHIAZOLE
     Route: 048
  118. PHTHALYLSULFATHIAZOLE [Suspect]
     Active Substance: PHTHALYLSULFATHIAZOLE
     Route: 065
  119. PREDNISONE [Suspect]
     Active Substance: PREDNISONE
     Indication: Rheumatoid arthritis
     Route: 048
  120. PREDNISONE [Suspect]
     Active Substance: PREDNISONE
     Route: 065
  121. PREDNISONE [Suspect]
     Active Substance: PREDNISONE
     Route: 048
  122. PREDNISONE [Suspect]
     Active Substance: PREDNISONE
     Route: 065
  123. PREDNISONE [Suspect]
     Active Substance: PREDNISONE
     Route: 065
  124. PREDNISONE [Suspect]
     Active Substance: PREDNISONE
     Route: 065
  125. PREDNISONE [Suspect]
     Active Substance: PREDNISONE
     Route: 065
  126. PREDNISONE [Suspect]
     Active Substance: PREDNISONE
     Route: 065
  127. PREDNISONE [Suspect]
     Active Substance: PREDNISONE
     Route: 065
  128. PREDNISONE [Suspect]
     Active Substance: PREDNISONE
     Route: 065
  129. PREDNISONE [Suspect]
     Active Substance: PREDNISONE
     Route: 065
  130. PSEUDOEPHEDRINE HYDROCHLORIDE [Suspect]
     Active Substance: PSEUDOEPHEDRINE HYDROCHLORIDE
     Indication: Rheumatoid arthritis
     Route: 065
  131. PSEUDOEPHEDRINE HYDROCHLORIDE [Suspect]
     Active Substance: PSEUDOEPHEDRINE HYDROCHLORIDE
     Route: 065
  132. PSEUDOEPHEDRINE HYDROCHLORIDE [Suspect]
     Active Substance: PSEUDOEPHEDRINE HYDROCHLORIDE
     Route: 065
  133. PSEUDOEPHEDRINE HYDROCHLORIDE [Suspect]
     Active Substance: PSEUDOEPHEDRINE HYDROCHLORIDE
     Route: 065
  134. PSEUDOEPHEDRINE HYDROCHLORIDE [Suspect]
     Active Substance: PSEUDOEPHEDRINE HYDROCHLORIDE
     Route: 065
  135. RAMIPRIL [Suspect]
     Active Substance: RAMIPRIL
     Indication: Rheumatoid arthritis
     Route: 065
  136. RAMIPRIL [Suspect]
     Active Substance: RAMIPRIL
     Route: 016
  137. RAMIPRIL [Suspect]
     Active Substance: RAMIPRIL
     Route: 065
  138. RANITIDINE HYDROCHLORIDE [Suspect]
     Active Substance: RANITIDINE HYDROCHLORIDE
     Indication: Rheumatoid arthritis
     Route: 065
  139. CETIRIZINE HYDROCHLORIDE\PSEUDOEPHEDRINE HYDROCHLORIDE [Suspect]
     Active Substance: CETIRIZINE HYDROCHLORIDE\PSEUDOEPHEDRINE HYDROCHLORIDE
     Indication: Rheumatoid arthritis
     Route: 065
  140. CETIRIZINE HYDROCHLORIDE\PSEUDOEPHEDRINE HYDROCHLORIDE [Suspect]
     Active Substance: CETIRIZINE HYDROCHLORIDE\PSEUDOEPHEDRINE HYDROCHLORIDE
     Route: 065
  141. CETIRIZINE HYDROCHLORIDE\PSEUDOEPHEDRINE HYDROCHLORIDE [Suspect]
     Active Substance: CETIRIZINE HYDROCHLORIDE\PSEUDOEPHEDRINE HYDROCHLORIDE
     Route: 065
  142. CETIRIZINE HYDROCHLORIDE\PSEUDOEPHEDRINE HYDROCHLORIDE [Suspect]
     Active Substance: CETIRIZINE HYDROCHLORIDE\PSEUDOEPHEDRINE HYDROCHLORIDE
     Route: 065
  143. CETIRIZINE HYDROCHLORIDE\PSEUDOEPHEDRINE HYDROCHLORIDE [Suspect]
     Active Substance: CETIRIZINE HYDROCHLORIDE\PSEUDOEPHEDRINE HYDROCHLORIDE
     Route: 065
  144. CETIRIZINE HYDROCHLORIDE\PSEUDOEPHEDRINE HYDROCHLORIDE [Suspect]
     Active Substance: CETIRIZINE HYDROCHLORIDE\PSEUDOEPHEDRINE HYDROCHLORIDE
     Route: 065
  145. CETIRIZINE HYDROCHLORIDE\PSEUDOEPHEDRINE HYDROCHLORIDE [Suspect]
     Active Substance: CETIRIZINE HYDROCHLORIDE\PSEUDOEPHEDRINE HYDROCHLORIDE
     Route: 065
  146. CETIRIZINE HYDROCHLORIDE\PSEUDOEPHEDRINE HYDROCHLORIDE [Suspect]
     Active Substance: CETIRIZINE HYDROCHLORIDE\PSEUDOEPHEDRINE HYDROCHLORIDE
     Route: 065
  147. CETIRIZINE HYDROCHLORIDE\PSEUDOEPHEDRINE HYDROCHLORIDE [Suspect]
     Active Substance: CETIRIZINE HYDROCHLORIDE\PSEUDOEPHEDRINE HYDROCHLORIDE
     Route: 065
  148. CETIRIZINE HYDROCHLORIDE\PSEUDOEPHEDRINE HYDROCHLORIDE [Suspect]
     Active Substance: CETIRIZINE HYDROCHLORIDE\PSEUDOEPHEDRINE HYDROCHLORIDE
     Route: 065
  149. CETIRIZINE HYDROCHLORIDE\PSEUDOEPHEDRINE HYDROCHLORIDE [Suspect]
     Active Substance: CETIRIZINE HYDROCHLORIDE\PSEUDOEPHEDRINE HYDROCHLORIDE
     Route: 065
  150. SULFASALAZINE [Suspect]
     Active Substance: SULFASALAZINE
     Indication: Rheumatoid arthritis
     Route: 065
  151. SIMPONI [Suspect]
     Active Substance: GOLIMUMAB
     Indication: Product used for unknown indication
     Route: 058
  152. SIMPONI [Suspect]
     Active Substance: GOLIMUMAB
     Route: 065
  153. SIMPONI [Suspect]
     Active Substance: GOLIMUMAB
     Route: 058
  154. SIMPONI [Suspect]
     Active Substance: GOLIMUMAB
     Route: 058
  155. SIMPONI [Suspect]
     Active Substance: GOLIMUMAB
     Route: 058
  156. SIRUKUMAB [Suspect]
     Active Substance: SIRUKUMAB
     Indication: Product used for unknown indication
     Route: 065
  157. SULFASALAZINE [Suspect]
     Active Substance: SULFASALAZINE
     Indication: Rheumatoid arthritis
     Route: 058
  158. SULFASALAZINE [Suspect]
     Active Substance: SULFASALAZINE
     Route: 058
  159. SULFASALAZINE [Suspect]
     Active Substance: SULFASALAZINE
     Route: 058
  160. SULFASALAZINE [Suspect]
     Active Substance: SULFASALAZINE
     Route: 048
  161. SULFASALAZINE [Suspect]
     Active Substance: SULFASALAZINE
     Route: 048
  162. SULFASALAZINE [Suspect]
     Active Substance: SULFASALAZINE
     Route: 048
  163. SULFASALAZINE [Suspect]
     Active Substance: SULFASALAZINE
     Route: 048
  164. SULFASALAZINE [Suspect]
     Active Substance: SULFASALAZINE
     Route: 048
  165. SULFASALAZINE [Suspect]
     Active Substance: SULFASALAZINE
     Route: 016
  166. SULFASALAZINE [Suspect]
     Active Substance: SULFASALAZINE
     Route: 065
  167. SULFASALAZINE [Suspect]
     Active Substance: SULFASALAZINE
     Route: 065
  168. SULFASALAZINE [Suspect]
     Active Substance: SULFASALAZINE
     Route: 065
  169. SULFASALAZINE [Suspect]
     Active Substance: SULFASALAZINE
     Route: 065
  170. SULFASALAZINE [Suspect]
     Active Substance: SULFASALAZINE
     Route: 065
  171. SULFASALAZINE [Suspect]
     Active Substance: SULFASALAZINE
     Route: 065
  172. SULFASALAZINE [Suspect]
     Active Substance: SULFASALAZINE
     Route: 065
  173. SULFASALAZINE [Suspect]
     Active Substance: SULFASALAZINE
     Route: 058
  174. SULFASALAZINE [Suspect]
     Active Substance: SULFASALAZINE
     Route: 058
  175. SULFASALAZINE [Suspect]
     Active Substance: SULFASALAZINE
     Route: 058
  176. SULFASALAZINE [Suspect]
     Active Substance: SULFASALAZINE
     Route: 058
  177. SULFASALAZINE [Suspect]
     Active Substance: SULFASALAZINE
     Route: 065
  178. SULFASALAZINE [Suspect]
     Active Substance: SULFASALAZINE
     Route: 065
  179. SULFASALAZINE [Suspect]
     Active Substance: SULFASALAZINE
     Route: 065
  180. SULFASALAZINE [Suspect]
     Active Substance: SULFASALAZINE
     Route: 065
  181. SULFASALAZINE [Suspect]
     Active Substance: SULFASALAZINE
     Route: 065
  182. NAPROXEN [Suspect]
     Active Substance: NAPROXEN
     Indication: Product used for unknown indication
     Route: 065
  183. VOLTAROL [Suspect]
     Active Substance: DICLOFENAC SODIUM
     Indication: Product used for unknown indication
     Route: 065
  184. DICLOFENAC [Suspect]
     Active Substance: DICLOFENAC
     Indication: Product used for unknown indication
     Route: 065

REACTIONS (65)
  - Systemic lupus erythematosus [Fatal]
  - Stomatitis [Fatal]
  - Urticaria [Fatal]
  - Type 2 diabetes mellitus [Fatal]
  - Liver injury [Fatal]
  - Lower respiratory tract infection [Fatal]
  - Pemphigus [Fatal]
  - Pericarditis [Fatal]
  - Pneumonia [Fatal]
  - Psoriatic arthropathy [Fatal]
  - Rheumatic fever [Fatal]
  - Rheumatoid arthritis [Fatal]
  - Intentional product use issue [Fatal]
  - Overdose [Fatal]
  - Treatment failure [Fatal]
  - Product quality issue [Fatal]
  - Therapeutic product effect decreased [Fatal]
  - Wound infection [Fatal]
  - Off label use [Fatal]
  - Underdose [Fatal]
  - Product label confusion [Fatal]
  - Product use in unapproved indication [Fatal]
  - Decreased appetite [Fatal]
  - Lung disorder [Fatal]
  - Malaise [Fatal]
  - Memory impairment [Fatal]
  - Migraine [Fatal]
  - Mobility decreased [Fatal]
  - Muscle injury [Fatal]
  - Muscle spasms [Fatal]
  - Muscular weakness [Fatal]
  - Musculoskeletal stiffness [Fatal]
  - Nail disorder [Fatal]
  - Nasopharyngitis [Fatal]
  - Nausea [Fatal]
  - Neck pain [Fatal]
  - Night sweats [Fatal]
  - Obesity [Fatal]
  - Onychomadesis [Fatal]
  - Sleep disorder [Fatal]
  - Swelling [Fatal]
  - Synovitis [Fatal]
  - Taste disorder [Fatal]
  - Vomiting [Fatal]
  - Weight increased [Fatal]
  - Wheezing [Fatal]
  - Wound [Fatal]
  - Hypersensitivity [Fatal]
  - Injury [Fatal]
  - Insomnia [Fatal]
  - Irritable bowel syndrome [Fatal]
  - Joint range of motion decreased [Fatal]
  - Joint swelling [Fatal]
  - Lip dry [Fatal]
  - Live birth [Fatal]
  - Liver function test increased [Fatal]
  - Onychomycosis [Fatal]
  - Osteoarthritis [Fatal]
  - Pain [Fatal]
  - Pain in extremity [Fatal]
  - Paraesthesia [Fatal]
  - Peripheral swelling [Fatal]
  - Peripheral venous disease [Fatal]
  - Rash [Fatal]
  - Maternal exposure during pregnancy [Fatal]
